FAERS Safety Report 10155794 (Version 3)
Quarter: 2014Q2

REPORT INFORMATION
  Report Type: Spontaneous
  Country: US (occurrence: US)
  Receive Date: 20140506
  Receipt Date: 20140521
  Transmission Date: 20141212
  Serious: Yes (Hospitalization, Other)
  Sender: FDA-Public Use
  Company Number: PHHY2014US036441

PATIENT
  Age: 75 Year
  Sex: Female

DRUGS (14)
  1. JAKAFI [Suspect]
     Indication: MYELOFIBROSIS
     Dosage: 10 MG, BID
     Route: 048
  2. JAKAFI [Suspect]
     Indication: POLYCYTHAEMIA VERA
     Dosage: 5 MG, 4 BID
     Route: 048
     Dates: start: 20140305
  3. SPIRONOLACTONE [Suspect]
     Indication: HYPERTENSION
     Dosage: 50 MG, QHS
     Route: 048
  4. SPIRONOLACTONE [Suspect]
     Indication: CARDIOVASCULAR DISORDER
  5. LOSARTAN [Suspect]
     Indication: HYPERTENSION
     Dosage: 50 MG, QD
  6. LASIX [Suspect]
     Indication: HYPERTENSION
     Dosage: 40 MG, QD
     Route: 048
  7. LASIX [Suspect]
     Indication: CARDIOVASCULAR DISORDER
  8. ALLOPURINOL [Concomitant]
     Dosage: UNK UKN, UNK
  9. PLAVIX [Concomitant]
     Dosage: UNK UKN, UNK
  10. LABETALOL [Concomitant]
     Dosage: UNK UKN, UNK
  11. IMDUR [Concomitant]
     Dosage: UNK UKN, UNK
  12. CLONIDINE [Concomitant]
     Dosage: UNK UKN, UNK
  13. AMLODIPINE [Concomitant]
     Dosage: UNK UKN, UNK
  14. RENVELA [Concomitant]
     Dosage: UNK UKN, UNK

REACTIONS (5)
  - Hyperkalaemia [Recovered/Resolved]
  - Full blood count decreased [Unknown]
  - Muscle spasms [Recovering/Resolving]
  - Vasodilatation [Recovering/Resolving]
  - Platelet count decreased [Recovering/Resolving]
